FAERS Safety Report 8080003-9 (Version None)
Quarter: 2012Q1

REPORT INFORMATION
  Report Type: 
  Country: None (occurrence: None)
  Receive Date: 20120128
  Receipt Date: 20110802
  Transmission Date: 20120608
  Serious: Yes (Other)
  Sender: FDA-Public Use
  Company Number: US-ABBOTT-11P-163-0843787-00

PATIENT
  Sex: Male

DRUGS (2)
  1. HUMIRA [Suspect]
     Indication: CROHN'S DISEASE
     Dates: start: 20110201, end: 20110601
  2. HUMIRA [Suspect]
     Dates: start: 20110718

REACTIONS (3)
  - CROHN'S DISEASE [None]
  - CONDITION AGGRAVATED [None]
  - CLOSTRIDIAL INFECTION [None]
